FAERS Safety Report 19698133 (Version 1)
Quarter: 2021Q3

REPORT INFORMATION
  Report Type: Report from Study
  Country: GB (occurrence: GB)
  Receive Date: 20210813
  Receipt Date: 20210813
  Transmission Date: 20211014
  Serious: Yes (Hospitalization, Other)
  Sender: FDA-Public Use
  Company Number: GB-BAUSCH-BL-2021-027901

PATIENT
  Age: 80 Year
  Sex: Male

DRUGS (1)
  1. KYNTHEUM (210 MILLIGRAM, SOLUTION FOR INJECTION) [Suspect]
     Active Substance: BRODALUMAB
     Indication: PSORIASIS
     Dosage: 210 MG WEEK 0,1, 2 AND THEN EVERY TWO WEEKS.
     Route: 058
     Dates: start: 20210211

REACTIONS (3)
  - Transient ischaemic attack [Unknown]
  - Peripheral swelling [Not Recovered/Not Resolved]
  - Transient ischaemic attack [Unknown]

NARRATIVE: CASE EVENT DATE: 202105
